FAERS Safety Report 9364470 (Version 1)
Quarter: 2013Q2

REPORT INFORMATION
  Report Type: Spontaneous
  Country: GB (occurrence: None)
  Receive Date: 20130619
  Receipt Date: 20130619
  Transmission Date: 20140414
  Serious: Yes (Other)
  Sender: FDA-Public Use
  Company Number: None

PATIENT
  Age: 33 Year
  Sex: Female

DRUGS (5)
  1. METRONIDAZOLE [Suspect]
     Indication: VAGINITIS BACTERIAL
     Route: 048
     Dates: start: 20130520, end: 20130525
  2. ATRIPLA(ATRIPLA)(EMTRICITABINE, EFAVIRENZ, TENOFOVIR DISOPROXIL FUMARATE) [Concomitant]
  3. SEPTRIN(BACTRIM)(SULFAMETHOXAZOLE, TRIMETHOPRIM) [Concomitant]
  4. VENLAFAXINE(VENLAFAXINE)(VENLAFAXINE) [Concomitant]
  5. ADCAL-D3(LEKOVIT CA)(COLECALCIFEROL, CALCIUM CARBONATE) [Concomitant]

REACTIONS (2)
  - Influenza like illness [None]
  - Diarrhoea [None]
